FAERS Safety Report 25225533 (Version 1)
Quarter: 2025Q2

REPORT INFORMATION
  Report Type: Spontaneous
  Country: US (occurrence: None)
  Receive Date: 20250422
  Receipt Date: 20250422
  Transmission Date: 20250716
  Serious: Yes (Death)
  Sender: FDA-CTU
  Company Number: None

PATIENT
  Age: 20 Year
  Sex: Male
  Weight: 63.96 kg

DRUGS (2)
  1. SPRYCEL [Suspect]
     Active Substance: DASATINIB
     Indication: Acute lymphocytic leukaemia
     Dosage: 100MG DAILY ORAL
     Route: 048
     Dates: start: 20250220, end: 20250415
  2. TACROLIMUS [Suspect]
     Active Substance: TACROLIMUS
     Indication: Bone marrow transplant
     Dosage: 3 MG BID ORAL ?
     Route: 048
     Dates: start: 20250117, end: 20250415

REACTIONS (2)
  - Critical illness [None]
  - Respiratory failure [None]

NARRATIVE: CASE EVENT DATE: 20250415
